FAERS Safety Report 9450136 (Version 1)
Quarter: 2013Q3

REPORT INFORMATION
  Report Type: Spontaneous
  Country: IT (occurrence: IT)
  Receive Date: 20130809
  Receipt Date: 20130809
  Transmission Date: 20140515
  Serious: Yes (Other)
  Sender: FDA-Public Use
  Company Number: IT-SANOFI-AVENTIS-2013SA077523

PATIENT
  Age: 51 Year
  Sex: Female
  Weight: 100 kg

DRUGS (4)
  1. TAXOTERE [Suspect]
     Indication: BREAST CANCER STAGE I
     Route: 041
     Dates: start: 20130424, end: 20130424
  2. TAXOTERE [Suspect]
     Indication: BREAST CANCER STAGE I
     Route: 041
     Dates: start: 20130502, end: 20130502
  3. GRANISETRON [Concomitant]
     Indication: VOMITING
     Route: 041
     Dates: start: 20130424, end: 20130502
  4. DEXAMETHASONE [Concomitant]
     Indication: VOMITING
     Route: 041
     Dates: start: 20130424, end: 20130502

REACTIONS (3)
  - Hyperaemia [Recovered/Resolved]
  - Vertigo [Recovered/Resolved]
  - Back pain [Unknown]
